FAERS Safety Report 8108213-2 (Version None)
Quarter: 2012Q1

REPORT INFORMATION
  Report Type: 
  Country: None (occurrence: None)
  Receive Date: 20120202
  Receipt Date: 20120127
  Transmission Date: 20120608
  Serious: Yes (Other)
  Sender: FDA-Public Use
  Company Number: US-PFIZER INC-2012004019

PATIENT
  Age: 63 Year
  Sex: Female
  Weight: 98 kg

DRUGS (10)
  1. CHANTIX [Suspect]
     Dosage: UNK
     Route: 048
     Dates: start: 20070101
  2. CHANTIX [Suspect]
     Dosage: UNK
     Route: 048
  3. HIPREX [Concomitant]
     Indication: BLADDER DISORDER
     Dosage: UNK
  4. XANAX [Concomitant]
     Dosage: UNK
  5. CHANTIX [Suspect]
     Indication: SMOKING CESSATION THERAPY
     Dosage: 0.5 MG, 1X/DAY
     Route: 048
     Dates: start: 20070101, end: 20070101
  6. ADVAIR DISKUS 100/50 [Concomitant]
     Indication: EMPHYSEMA
     Dosage: UNK
  7. SPIRIVA [Concomitant]
     Indication: EMPHYSEMA
     Dosage: UNK
  8. PROVENTIL TABLET [Concomitant]
     Indication: EMPHYSEMA
     Dosage: UNK
  9. ARFORMOTEROL TARTRATE [Concomitant]
     Indication: EMPHYSEMA
     Dosage: UNK
  10. THEOPHYLLINE [Concomitant]
     Indication: EMPHYSEMA
     Dosage: UNK

REACTIONS (4)
  - SINUSITIS [None]
  - EMPHYSEMA [None]
  - FEELING ABNORMAL [None]
  - NAUSEA [None]
